FAERS Safety Report 12907240 (Version 4)
Quarter: 2016Q4

REPORT INFORMATION
  Report Type: Report from Study
  Country: PL (occurrence: PL)
  Receive Date: 20161103
  Receipt Date: 20161223
  Transmission Date: 20170207
  Serious: Yes (Hospitalization, Other)
  Sender: FDA-Public Use
  Company Number: PHHY2016PL150895

PATIENT

DRUGS (1)
  1. EXJADE [Suspect]
     Active Substance: DEFERASIROX
     Indication: PRODUCT USED FOR UNKNOWN INDICATION
     Dosage: 500 MG, QD
     Route: 048
     Dates: start: 201503

REACTIONS (4)
  - Abdominal pain [Unknown]
  - Cholelithiasis [Unknown]
  - Cerebral palsy [Unknown]
  - Seizure [Unknown]

NARRATIVE: CASE EVENT DATE: 20161031
